FAERS Safety Report 10201378 (Version 2)
Quarter: 2014Q2

REPORT INFORMATION
  Report Type: Report from Study
  Country: JP (occurrence: JP)
  Receive Date: 20140528
  Receipt Date: 20140630
  Transmission Date: 20141212
  Serious: Yes (Hospitalization)
  Sender: FDA-Public Use
  Company Number: PHHY2014JP064991

PATIENT
  Age: 61 Year
  Sex: Male
  Weight: 48 kg

DRUGS (8)
  1. CERTICAN [Suspect]
     Indication: RENAL TRANSPLANT
     Dosage: 1.5 MG, DAILY
     Route: 048
     Dates: start: 20130314, end: 20130402
  2. SIMULECT [Concomitant]
     Indication: RENAL TRANSPLANT
     Dosage: 20 MG, UNK
     Route: 042
     Dates: start: 20130318
  3. SIMULECT [Concomitant]
     Dosage: 20 MG, UNK
     Route: 042
     Dates: end: 20130322
  4. NEORAL [Concomitant]
     Indication: RENAL TRANSPLANT
     Dosage: 200 MG, UNK
     Route: 048
     Dates: start: 20130314, end: 20130402
  5. PREDONINE [Concomitant]
     Indication: RENAL TRANSPLANT
     Route: 048
     Dates: start: 20130314
  6. BREDININ [Concomitant]
     Indication: RENAL TRANSPLANT
     Route: 048
     Dates: start: 20130314
  7. ATELEC [Concomitant]
     Indication: HYPERTENSION
     Dosage: 20 MG, UNK
     Route: 048
  8. FEBURIC [Concomitant]
     Indication: HYPERURICAEMIA
     Dosage: 10 MG, UNK
     Route: 048

REACTIONS (2)
  - Surgical failure [Recovered/Resolved]
  - Urinary anastomotic leak [Recovered/Resolved]
